FAERS Safety Report 6275603-2 (Version None)
Quarter: 2009Q3

REPORT INFORMATION
  Report Type: 
  Country: None (occurrence: None)
  Receive Date: 20090721
  Receipt Date: 20090714
  Transmission Date: 20100115
  Serious: Yes (Hospitalization)
  Sender: FDA-Public Use
  Company Number: US-ORACLE-2009S1000272

PATIENT
  Sex: Male

DRUGS (7)
  1. CUBICIN [Suspect]
     Indication: CATHETER RELATED INFECTION
     Route: 042
  2. TAMSULOSIN [Concomitant]
  3. LORTAB [Concomitant]
  4. PAXIL [Concomitant]
  5. PREDNISONE [Concomitant]
  6. PANTOPRAZOLE SODIUM [Concomitant]
  7. ALPRAZOLAM [Concomitant]

REACTIONS (10)
  - DEHYDRATION [None]
  - DIARRHOEA [None]
  - DYSARTHRIA [None]
  - DYSPHAGIA [None]
  - FACIAL PALSY [None]
  - HYPOAESTHESIA ORAL [None]
  - MUSCULOSKELETAL DISCOMFORT [None]
  - NAUSEA [None]
  - SWOLLEN TONGUE [None]
  - VOMITING [None]
